FAERS Safety Report 20430734 (Version 1)
Quarter: 2022Q1

REPORT INFORMATION
  Report Type: Report from Study
  Country: FR (occurrence: FR)
  Receive Date: 20220204
  Receipt Date: 20220204
  Transmission Date: 20220423
  Serious: Yes (Hospitalization)
  Sender: FDA-Public Use
  Company Number: FR-SERVIER-S32003618

PATIENT

DRUGS (6)
  1. PEGASPARGASE [Suspect]
     Active Substance: PEGASPARGASE
     Indication: Acute lymphocytic leukaemia
     Dosage: 2100 IU, QD ON D8, D36
     Dates: start: 20210121
  2. TN UNSPECIFIED [Concomitant]
     Indication: Acute lymphocytic leukaemia
     Dosage: 12 MG, D2, D30
     Route: 037
     Dates: start: 20210113
  3. TN UNSPECIFIED [Concomitant]
     Dosage: 20 MG, D8, D15, D22, D36
     Route: 048
     Dates: start: 20210121
  4. TN UNSPECIFIED [Concomitant]
     Indication: Acute lymphocytic leukaemia
     Dosage: 5 MG, D1 TO D5, D29 TO D33
     Route: 048
     Dates: start: 20210114
  5. TN UNSPECIFIED [Concomitant]
     Indication: Acute lymphocytic leukaemia
     Dosage: 40 MG, D1 TO D22 AND FROM 29
     Route: 048
     Dates: start: 20210114
  6. TN UNSPECIFIED [Concomitant]
     Indication: Acute lymphocytic leukaemia
     Dosage: 1.2 MG, D1, D8, D29, D36
     Route: 042
     Dates: start: 20210114

REACTIONS (1)
  - Sepsis [Not Recovered/Not Resolved]

NARRATIVE: CASE EVENT DATE: 20210225
